FAERS Safety Report 18762461 (Version 1)
Quarter: 2021Q1

REPORT INFORMATION
  Report Type: Spontaneous
  Country: US (occurrence: US)
  Receive Date: 20210119
  Receipt Date: 20210119
  Transmission Date: 20210419
  Serious: Yes (Other)
  Sender: FDA-Public Use
  Company Number: None

PATIENT
  Age: 41 Year
  Sex: Female
  Weight: 69.75 kg

DRUGS (7)
  1. MUSCLE RELAXER [Concomitant]
     Active Substance: UNSPECIFIED INGREDIENT
  2. BAYER [Concomitant]
     Active Substance: ASPIRIN
  3. MULTIVITAMINS [Concomitant]
     Active Substance: VITAMINS
  4. HAIR VITAMINS [Concomitant]
  5. HERBAL LAXATIVES [Concomitant]
  6. MOTRIN [Concomitant]
     Active Substance: IBUPROFEN
  7. VIVITROL [Suspect]
     Active Substance: NALTREXONE
     Indication: ALCOHOLISM
     Dates: start: 20201218

REACTIONS (7)
  - Peripheral swelling [None]
  - Injection site mass [None]
  - Dry mouth [None]
  - Arthralgia [None]
  - Myalgia [None]
  - Joint swelling [None]
  - Muscle spasms [None]

NARRATIVE: CASE EVENT DATE: 20201221
